FAERS Safety Report 18730328 (Version 1)
Quarter: 2021Q1

REPORT INFORMATION
  Report Type: Spontaneous
  Country: US (occurrence: US)
  Receive Date: 20210112
  Receipt Date: 20210112
  Transmission Date: 20210419
  Serious: Yes (Other)
  Sender: FDA-Public Use
  Company Number: None

PATIENT
  Age: 62 Year
  Sex: Female
  Weight: 78.35 kg

DRUGS (13)
  1. GABPENTIN [Concomitant]
  2. VITAMIN C [Concomitant]
     Active Substance: ASCORBIC ACID
  3. IBRANCE [Suspect]
     Active Substance: PALBOCICLIB
     Indication: BREAST CANCER
     Route: 048
     Dates: start: 20201221
  4. ALBUTEROL. [Concomitant]
     Active Substance: ALBUTEROL
  5. CHLORTHALIDONE. [Concomitant]
     Active Substance: CHLORTHALIDONE
  6. ATORVASTATIN [Concomitant]
     Active Substance: ATORVASTATIN
  7. POTASSIUM [Concomitant]
     Active Substance: POTASSIUM
  8. FLUTICASONE. [Concomitant]
     Active Substance: FLUTICASONE
  9. HYDROCODONE BITARTRATE AND ACETAMINOPHEN [Concomitant]
     Active Substance: ACETAMINOPHEN\HYDROCODONE BITARTRATE
  10. DOCUSATE SODIUM. [Concomitant]
     Active Substance: DOCUSATE SODIUM
  11. CALCIUM +D [Concomitant]
     Active Substance: CALCIUM\VITAMIN D
  12. OMEPRAZOLE. [Concomitant]
     Active Substance: OMEPRAZOLE
  13. VITAMIN B12 [Concomitant]
     Active Substance: CYANOCOBALAMIN

REACTIONS (1)
  - Epistaxis [None]

NARRATIVE: CASE EVENT DATE: 20210112
